FAERS Safety Report 14074232 (Version 2)
Quarter: 2019Q2

REPORT INFORMATION
  Report Type: Report from Study
  Country: US (occurrence: US)
  Receive Date: 20171011
  Receipt Date: 20190610
  Transmission Date: 20190711
  Serious: No
  Sender: FDA-Public Use
  Company Number: PHEH2017US032395

PATIENT
  Sex: Male

DRUGS (1)
  1. COSENTYX [Suspect]
     Active Substance: SECUKINUMAB
     Indication: PSORIASIS
     Dosage: 300 MG, QMO (EVERY FOUR WEEKS)
     Route: 065
     Dates: start: 20160302, end: 20190416

REACTIONS (2)
  - Hypertension [Unknown]
  - Influenza [Unknown]

NARRATIVE: CASE EVENT DATE: 201703
